FAERS Safety Report 5682994-X (Version None)
Quarter: 2008Q1

REPORT INFORMATION
  Report Type: 
  Country: None (occurrence: None)
  Receive Date: 20080327
  Receipt Date: 20080319
  Transmission Date: 20080703
  Serious: Yes (Other)
  Sender: FDA-Public Use
  Company Number: JP-WYE-H03292908

PATIENT

DRUGS (1)
  1. AMIODARONE HCL [Suspect]
     Route: 048

REACTIONS (1)
  - PLEURAL EFFUSION [None]
